FAERS Safety Report 8205685 (Version 14)
Quarter: 2014Q3

REPORT INFORMATION
  Report Type: Spontaneous
  Country: US (occurrence: US)
  Receive Date: 20111028
  Receipt Date: 20140721
  Transmission Date: 20150326
  Serious: Yes (Other)
  Sender: FDA-Public Use
  Company Number: PHEH2005US14202

PATIENT
  Age: 43 Year
  Sex: Female
  Weight: 94.3 kg

DRUGS (33)
  1. ZOMETA [Suspect]
     Active Substance: ZOLEDRONIC ACID
     Dosage: 4 MG, Q8W
     Dates: start: 200405, end: 200410
  2. NOVANTRONE [Concomitant]
     Active Substance: MITOXANTRONE HYDROCHLORIDE
  3. ASPIRIN. [Concomitant]
     Active Substance: ASPIRIN
  4. ROCEPHIN [Concomitant]
     Active Substance: CEFTRIAXONE SODIUM
  5. THERATOPE [Concomitant]
     Indication: BREAST CANCER
     Dates: start: 200003, end: 200011
  6. THIOTEPA. [Concomitant]
     Active Substance: THIOTEPA
  7. HERCEPTIN [Concomitant]
     Active Substance: TRASTUZUMAB
  8. CALCIUM [Concomitant]
     Active Substance: CALCIUM
  9. ZOLOFT [Concomitant]
     Active Substance: SERTRALINE HYDROCHLORIDE
     Dosage: 50 MG, QD
  10. VENLAFAXINE [Concomitant]
     Active Substance: VENLAFAXINE HYDROCHLORIDE
  11. VALIUM [Concomitant]
     Active Substance: DIAZEPAM
  12. AREDIA [Suspect]
     Active Substance: PAMIDRONATE DISODIUM
     Dosage: 90 MG, QMO
     Dates: start: 199911, end: 20020221
  13. THIAMAZOLE [Concomitant]
     Active Substance: METHIMAZOLE
     Dosage: 10 MG, BID
  14. TAXOL [Concomitant]
     Active Substance: PACLITAXEL
  15. CYTOXAN [Concomitant]
     Active Substance: CYCLOPHOSPHAMIDE
  16. TAMOXIFEN [Concomitant]
     Active Substance: TAMOXIFEN
     Dosage: 20 MG, QD
  17. VITAMINS [Concomitant]
     Active Substance: VITAMINS
  18. LEVOTHYROXINE [Concomitant]
     Active Substance: LEVOTHYROXINE
  19. DOLOBID [Concomitant]
     Active Substance: DIFLUNISAL
  20. TYLENOL [Concomitant]
     Active Substance: ACETAMINOPHEN
  21. PROVENTIL HFA [Concomitant]
     Active Substance: ALBUTEROL SULFATE
  22. NOLVADEX [Concomitant]
     Active Substance: TAMOXIFEN CITRATE
  23. ATIVAN [Concomitant]
     Active Substance: LORAZEPAM
     Indication: ANXIETY
     Dosage: 1 MG, UNK
  24. CHLORHEXIDINE GLUCONATE. [Concomitant]
     Active Substance: CHLORHEXIDINE GLUCONATE
  25. AREDIA [Suspect]
     Active Substance: PAMIDRONATE DISODIUM
     Indication: METASTASES TO BONE
     Dosage: 90 MG, QMO
     Route: 042
     Dates: start: 19990623, end: 199908
  26. ZOMETA [Suspect]
     Active Substance: ZOLEDRONIC ACID
     Indication: METASTASES TO BONE
     Dosage: 4 MG, QMO
     Route: 042
     Dates: start: 20020321, end: 20040417
  27. ADRIAMYCIN [Concomitant]
     Active Substance: DOXORUBICIN HYDROCHLORIDE
  28. FEMARA [Concomitant]
     Active Substance: LETROZOLE
  29. AROMASIN [Concomitant]
     Active Substance: EXEMESTANE
  30. SYNTHROID [Concomitant]
     Active Substance: LEVOTHYROXINE SODIUM
     Indication: AUTOIMMUNE THYROIDITIS
     Dosage: 0.015 MG, QD
  31. HERBAL NOS [Concomitant]
     Active Substance: HERBALS
  32. AMOXICILLIN. [Concomitant]
     Active Substance: AMOXICILLIN
  33. AEROSOL [Concomitant]
     Dates: start: 20110607

REACTIONS (123)
  - Osteomyelitis [Recovering/Resolving]
  - Actinomycosis [Recovering/Resolving]
  - Morganella infection [Unknown]
  - Hot flush [Unknown]
  - Psoriasis [Unknown]
  - Sarcoidosis [Unknown]
  - Lower extremity mass [Unknown]
  - Oedema peripheral [Unknown]
  - Mitral valve incompetence [Unknown]
  - Chills [Unknown]
  - Musculoskeletal pain [Unknown]
  - Obesity [Unknown]
  - Insomnia [Unknown]
  - Bone loss [Unknown]
  - Vaginal haemorrhage [Unknown]
  - Vulvovaginal dryness [Unknown]
  - Gingival recession [Unknown]
  - Fistula [Unknown]
  - Gastrointestinal disorder [Unknown]
  - Tooth infection [Recovering/Resolving]
  - Diverticulum intestinal [Unknown]
  - Hypertension [Recovering/Resolving]
  - Myalgia [Unknown]
  - Gingival disorder [Unknown]
  - Bruxism [Unknown]
  - Periodontitis [Unknown]
  - Type V hyperlipidaemia [Unknown]
  - Urinary tract infection [Unknown]
  - Depression [Unknown]
  - Apical granuloma [Recovering/Resolving]
  - Wheezing [Unknown]
  - Rotator cuff syndrome [Unknown]
  - Dental plaque [Unknown]
  - Uterine polyp [Unknown]
  - Dental caries [Unknown]
  - Bone disorder [Recovering/Resolving]
  - Gingival oedema [Recovering/Resolving]
  - Bone formation increased [Recovering/Resolving]
  - Hypothyroidism [Unknown]
  - Anaemia [Unknown]
  - Fatigue [Unknown]
  - Toothache [Unknown]
  - Glucose tolerance test abnormal [Unknown]
  - Bronchitis [Unknown]
  - Hilar lymphadenopathy [Unknown]
  - Ligament sprain [Unknown]
  - Foreign body [Unknown]
  - Dyspareunia [Unknown]
  - Swelling [Recovering/Resolving]
  - Infection [Unknown]
  - Paraesthesia [Unknown]
  - Melanosis coli [Unknown]
  - Adenoma benign [Unknown]
  - Fibroma [Unknown]
  - Pneumonia [Unknown]
  - Visual impairment [Unknown]
  - Osteopenia [Unknown]
  - Second primary malignancy [Unknown]
  - Excessive granulation tissue [Unknown]
  - Tooth disorder [Recovering/Resolving]
  - Tooth fracture [Recovering/Resolving]
  - Soft tissue disorder [Unknown]
  - Inflammation [Recovering/Resolving]
  - Malaise [Unknown]
  - Otitis externa [Unknown]
  - Otorrhoea [Unknown]
  - Libido decreased [Unknown]
  - Joint effusion [Unknown]
  - Iron deficiency anaemia [Unknown]
  - Skin papilloma [Unknown]
  - Oral pain [Unknown]
  - Oropharyngeal pain [Unknown]
  - Sinus congestion [Unknown]
  - Osteoarthritis [Unknown]
  - Scoliosis [Unknown]
  - Atrophic vulvovaginitis [Unknown]
  - Osteonecrosis of jaw [Recovering/Resolving]
  - Erythema [Recovering/Resolving]
  - Periodontal disease [Recovering/Resolving]
  - Purulent discharge [Unknown]
  - Hepatic steatosis [Unknown]
  - Occult blood positive [Unknown]
  - Cough [Unknown]
  - Sinus headache [Unknown]
  - Lung infiltration [Unknown]
  - Large intestine benign neoplasm [Unknown]
  - Haemorrhoids [Unknown]
  - Panic disorder [Unknown]
  - Oral discharge [Recovering/Resolving]
  - Resorption bone increased [Recovering/Resolving]
  - Tooth abscess [Recovering/Resolving]
  - Oral discomfort [Recovering/Resolving]
  - Smear cervix abnormal [Unknown]
  - Alopecia [Unknown]
  - Dyspnoea exertional [Unknown]
  - Palatal disorder [Unknown]
  - Bursitis [Unknown]
  - Rhinorrhoea [Unknown]
  - Ovarian failure [Unknown]
  - Squamous cell carcinoma [Unknown]
  - Gastrointestinal haemorrhage [Unknown]
  - Polyp [Unknown]
  - Obsessive thoughts [Unknown]
  - Pulpitis dental [Unknown]
  - Pain in jaw [Unknown]
  - Primary sequestrum [Recovering/Resolving]
  - Klebsiella infection [Recovering/Resolving]
  - Gingival swelling [Recovering/Resolving]
  - Atelectasis [Unknown]
  - Pyrexia [Unknown]
  - Computerised tomogram abnormal [Unknown]
  - Weight increased [Unknown]
  - Anxiety [Recovering/Resolving]
  - Tooth loss [Unknown]
  - Loose tooth [Unknown]
  - Uterine leiomyoma [Unknown]
  - Monarthritis [Unknown]
  - Percussion test abnormal [Recovering/Resolving]
  - Ear pain [Unknown]
  - Epstein-Barr virus infection [Unknown]
  - Rectal haemorrhage [Unknown]
  - Autoimmune thyroiditis [Unknown]
  - Anhedonia [Unknown]

NARRATIVE: CASE EVENT DATE: 200208
